FAERS Safety Report 10920180 (Version 39)
Quarter: 2024Q4

REPORT INFORMATION
  Report Type: Report from Study
  Country: CA (occurrence: CA)
  Receive Date: 20150317
  Receipt Date: 20241125
  Transmission Date: 20250115
  Serious: Yes (Other)
  Sender: NOVARTIS
  Company Number: PHHY2015CA028279

PATIENT
  Age: 2 Year
  Sex: Female

DRUGS (39)
  1. ILARIS [Suspect]
     Active Substance: CANAKINUMAB
     Indication: Muckle-Wells syndrome
     Dosage: 25 UNK EVERY 8 WEEKS
     Route: 058
     Dates: start: 20140525
  2. ILARIS [Suspect]
     Active Substance: CANAKINUMAB
     Dosage: 60 MG, EVERY 8 WEEKS
     Route: 058
  3. ILARIS [Suspect]
     Active Substance: CANAKINUMAB
     Dosage: 25 UNK, ONE TIME DOSE
     Route: 058
  4. ILARIS [Suspect]
     Active Substance: CANAKINUMAB
     Dosage: 50 MG, Q8 WEEKS
     Route: 058
  5. ILARIS [Suspect]
     Active Substance: CANAKINUMAB
     Dosage: 50 MG, EVERY 8 WEEKS
     Route: 058
  6. ILARIS [Suspect]
     Active Substance: CANAKINUMAB
     Dosage: 50 MG, Q8 WEEKS
     Route: 058
     Dates: start: 2014
  7. ILARIS [Suspect]
     Active Substance: CANAKINUMAB
     Dosage: UNK
     Route: 058
     Dates: start: 20150305
  8. ILARIS [Suspect]
     Active Substance: CANAKINUMAB
     Dosage: 50 MG, Q8 WEEKS
     Route: 058
     Dates: start: 20150625
  9. ILARIS [Suspect]
     Active Substance: CANAKINUMAB
     Dosage: 50 MG, Q8 WEEKS
     Route: 058
     Dates: start: 20151015
  10. ILARIS [Suspect]
     Active Substance: CANAKINUMAB
     Dosage: 50 MG, Q8 WEEKS
     Route: 058
     Dates: start: 20151210
  11. ILARIS [Suspect]
     Active Substance: CANAKINUMAB
     Dosage: UNK
     Route: 058
     Dates: start: 20160204
  12. ILARIS [Suspect]
     Active Substance: CANAKINUMAB
     Dosage: UNK
     Route: 058
     Dates: start: 20160328
  13. ILARIS [Suspect]
     Active Substance: CANAKINUMAB
     Dosage: 50 MG, Q8 WEEKS
     Route: 058
     Dates: start: 20160519
  14. ILARIS [Suspect]
     Active Substance: CANAKINUMAB
     Dosage: UNK
     Route: 058
     Dates: start: 20160714
  15. ILARIS [Suspect]
     Active Substance: CANAKINUMAB
     Dosage: UNK
     Route: 058
     Dates: start: 20160908
  16. ILARIS [Suspect]
     Active Substance: CANAKINUMAB
     Dosage: UNK
     Route: 058
  17. ILARIS [Suspect]
     Active Substance: CANAKINUMAB
     Dosage: UNK
     Route: 058
     Dates: start: 20161103
  18. ILARIS [Suspect]
     Active Substance: CANAKINUMAB
     Dosage: UNK
     Route: 058
     Dates: start: 20161229
  19. ILARIS [Suspect]
     Active Substance: CANAKINUMAB
     Dosage: UNK
     Route: 058
     Dates: start: 20170223
  20. ILARIS [Suspect]
     Active Substance: CANAKINUMAB
     Dosage: UNK
     Route: 065
     Dates: start: 20170420
  21. ILARIS [Suspect]
     Active Substance: CANAKINUMAB
     Dosage: UNK
     Route: 065
     Dates: start: 20170810
  22. ILARIS [Suspect]
     Active Substance: CANAKINUMAB
     Dosage: UNK
     Route: 065
     Dates: start: 20171006
  23. ILARIS [Suspect]
     Active Substance: CANAKINUMAB
     Dosage: UNK
     Route: 065
     Dates: start: 20171130
  24. ILARIS [Suspect]
     Active Substance: CANAKINUMAB
     Dosage: UNK
     Route: 065
     Dates: start: 20180125
  25. ILARIS [Suspect]
     Active Substance: CANAKINUMAB
     Dosage: UNK
     Route: 065
     Dates: start: 20180320
  26. ILARIS [Suspect]
     Active Substance: CANAKINUMAB
     Dosage: UNK
     Route: 065
     Dates: start: 20180320
  27. ILARIS [Suspect]
     Active Substance: CANAKINUMAB
     Dosage: 50 OT, EVERY 8 WEEKS
     Route: 058
     Dates: start: 20180517
  28. ILARIS [Suspect]
     Active Substance: CANAKINUMAB
     Dosage: 50 OT, EVERY 8 WEEKS
     Route: 058
     Dates: start: 20180712
  29. ILARIS [Suspect]
     Active Substance: CANAKINUMAB
     Dosage: 50 OT, EVERY 8 WEEKS
     Route: 058
     Dates: start: 20180906
  30. ILARIS [Suspect]
     Active Substance: CANAKINUMAB
     Dosage: 50 OT, 8 WEEKS
     Route: 058
     Dates: start: 20181101
  31. ILARIS [Suspect]
     Active Substance: CANAKINUMAB
     Dosage: 50 MG, EVERY 8 WEEKS
     Route: 058
     Dates: start: 20181227
  32. ILARIS [Suspect]
     Active Substance: CANAKINUMAB
     Dosage: 50 MG, EVERY 8 WEEKS
     Route: 058
     Dates: start: 20190221
  33. ILARIS [Suspect]
     Active Substance: CANAKINUMAB
     Dosage: 50 MG, EVERY 8 WEEKS
     Route: 058
     Dates: start: 20190613
  34. ILARIS [Suspect]
     Active Substance: CANAKINUMAB
     Dosage: 50 OT, EVERY 8 WEEKS
     Route: 058
     Dates: start: 20190808
  35. ILARIS [Suspect]
     Active Substance: CANAKINUMAB
     Dosage: 50 MG EVERY 8 WEEKS
     Route: 058
     Dates: start: 20191003
  36. ILARIS [Suspect]
     Active Substance: CANAKINUMAB
     Dosage: UNK
     Route: 058
     Dates: start: 20200318
  37. ILARIS [Suspect]
     Active Substance: CANAKINUMAB
     Dosage: UNK (49, 8 WEEKS)
     Route: 058
     Dates: start: 20200513
  38. ILARIS [Suspect]
     Active Substance: CANAKINUMAB
     Dosage: UNK (60, EVERY 8 WEEKS)
     Route: 058
  39. ILARIS [Suspect]
     Active Substance: CANAKINUMAB
     Dosage: 70.5 MG, EVERY 8 WEEKS
     Route: 065

REACTIONS (7)
  - Blood pressure decreased [Unknown]
  - Cough [Recovered/Resolved]
  - Oral pain [Recovering/Resolving]
  - Oral herpes [Recovering/Resolving]
  - Muckle-Wells syndrome [Unknown]
  - Prescribed underdose [Unknown]
  - Weight increased [Unknown]

NARRATIVE: CASE EVENT DATE: 20150101
